FAERS Safety Report 20784424 (Version 1)
Quarter: 2022Q2

REPORT INFORMATION
  Report Type: Spontaneous
  Country: US (occurrence: US)
  Receive Date: 20220504
  Receipt Date: 20220504
  Transmission Date: 20220721
  Serious: No
  Sender: FDA-Public Use
  Company Number: US-PFIZER INC-202200633373

PATIENT
  Age: 63 Year
  Sex: Male
  Weight: 111.13 kg

DRUGS (6)
  1. PAXLOVID [Suspect]
     Active Substance: NIRMATRELVIR\RITONAVIR
     Indication: COVID-19 treatment
     Dosage: TWO 150MG NIRMATRELVIR TABLETS AND ONE 100MG RITONAVIR TABLET, TWICE A DAY
     Route: 048
     Dates: start: 20220426
  2. TYLENOL [Concomitant]
     Active Substance: ACETAMINOPHEN
     Dosage: 1000 MG
  3. IBUPROFEN [Concomitant]
     Active Substance: IBUPROFEN
     Dosage: 600 MG
  4. SYNTHROID [Concomitant]
     Active Substance: LEVOTHYROXINE SODIUM
     Indication: Hypothyroidism
     Dosage: 150 MG, 1X/DAY (ONCE A MORNING)
     Route: 048
     Dates: start: 1997
  5. DULOXETINE [Concomitant]
     Active Substance: DULOXETINE
     Dosage: 60 MG, 1X/DAY (ONCE EVERY MORNING)
     Route: 048
  6. LOSARTAN [Concomitant]
     Active Substance: LOSARTAN
     Indication: Hypertension
     Dosage: 50 MG, 1X/DAY (ONCE EVERY EVENING)
     Route: 048

REACTIONS (10)
  - Drug hypersensitivity [Unknown]
  - Taste disorder [Unknown]
  - Headache [Unknown]
  - Nausea [Not Recovered/Not Resolved]
  - Throat tightness [Recovering/Resolving]
  - Dizziness [Recovering/Resolving]
  - Feeling abnormal [Unknown]
  - Vertigo positional [Unknown]
  - Decreased appetite [Unknown]
  - Dry mouth [Not Recovered/Not Resolved]

NARRATIVE: CASE EVENT DATE: 20220401
